FAERS Safety Report 24823369 (Version 1)
Quarter: 2025Q1

REPORT INFORMATION
  Report Type: Spontaneous
  Country: US (occurrence: US)
  Receive Date: 20250109
  Receipt Date: 20250109
  Transmission Date: 20250409
  Serious: Yes (Hospitalization)
  Sender: AUROBINDO
  Company Number: US-AUROBINDO-AUR-APL-2024-025565

PATIENT

DRUGS (4)
  1. CLOZAPINE [Suspect]
     Active Substance: CLOZAPINE
     Indication: Product used for unknown indication
     Route: 048
  2. CLOZAPINE [Suspect]
     Active Substance: CLOZAPINE
     Route: 048
     Dates: start: 20240510
  3. CLOZAPINE [Suspect]
     Active Substance: CLOZAPINE
     Dosage: 75 MILLIGRAM, TWO TIMES A DAY
     Route: 048
     Dates: start: 20240511
  4. CLOZAPINE [Suspect]
     Active Substance: CLOZAPINE
     Route: 048
     Dates: start: 20240512

REACTIONS (1)
  - Fall [Unknown]

NARRATIVE: CASE EVENT DATE: 20240509
